FAERS Safety Report 6283996-5 (Version None)
Quarter: 2009Q3

REPORT INFORMATION
  Report Type: 
  Country: None (occurrence: None)
  Receive Date: 20090727
  Receipt Date: 20090717
  Transmission Date: 20100115
  Serious: Yes (Hospitalization, Other)
  Sender: FDA-Public Use
  Company Number: NL-BIOGENIDEC-2009BI004525

PATIENT
  Age: 42 Year
  Sex: Male

DRUGS (4)
  1. TYSABRI [Suspect]
     Indication: MULTIPLE SCLEROSIS
     Route: 042
     Dates: start: 20070629, end: 20081031
  2. SYMMETREL [Concomitant]
     Indication: FATIGUE
  3. METOPROLOL SUCCINATE [Concomitant]
     Indication: HYPERTENSION
  4. TOLTERODINE TARTRATE [Concomitant]
     Indication: BLADDER DISORDER

REACTIONS (2)
  - APPENDICITIS [None]
  - CARCINOID TUMOUR OF THE APPENDIX [None]
